FAERS Safety Report 24768318 (Version 2)
Quarter: 2025Q3

REPORT INFORMATION
  Report Type: Spontaneous
  Country: US (occurrence: US)
  Receive Date: 20241223
  Receipt Date: 20250803
  Transmission Date: 20251021
  Serious: Yes (Other)
  Sender: ALEXION PHARMACEUTICALS
  Company Number: US-AstraZeneca-CH-00769307A

PATIENT
  Age: 90 Year
  Sex: Male

DRUGS (2)
  1. VOYDEYA [Suspect]
     Active Substance: DANICOPAN
     Route: 065
  2. ULTOMIRIS [Suspect]
     Active Substance: RAVULIZUMAB-CWVZ
     Indication: Paroxysmal nocturnal haemoglobinuria
     Route: 065

REACTIONS (2)
  - Haemoglobin decreased [Unknown]
  - Hepatic enzyme increased [Unknown]
